FAERS Safety Report 24352855 (Version 1)
Quarter: 2024Q3

REPORT INFORMATION
  Report Type: Spontaneous
  Country: CN (occurrence: CN)
  Receive Date: 20240923
  Receipt Date: 20240923
  Transmission Date: 20241016
  Serious: No
  Sender: ROCHE
  Company Number: CN-ROCHE-3469200

PATIENT

DRUGS (1)
  1. TRASTUZUMAB [Suspect]
     Active Substance: TRASTUZUMAB
     Indication: Breast cancer
     Dosage: THE LOADING DOSE WAS 8 MG/KG AND THE MAINTENANCE DOSE WAS 6 MG/KG
     Route: 065

REACTIONS (1)
  - Cardiotoxicity [Unknown]
